FAERS Safety Report 14213947 (Version 1)
Quarter: 2017Q4

REPORT INFORMATION
  Report Type: Spontaneous
  Country: US (occurrence: US)
  Receive Date: 20171122
  Receipt Date: 20171122
  Transmission Date: 20180321
  Serious: Yes (Hospitalization)
  Sender: FDA-Public Use
  Company Number: US-ELI_LILLY_AND_COMPANY-US201711006941

PATIENT
  Sex: Female

DRUGS (9)
  1. COZAAR [Concomitant]
     Active Substance: LOSARTAN POTASSIUM
     Indication: BLOOD PRESSURE MEASUREMENT
  2. HUMALOG [Suspect]
     Active Substance: INSULIN LISPRO
     Indication: TYPE 2 DIABETES MELLITUS
     Dosage: UNK, UNKNOWN
     Route: 058
     Dates: start: 1996
  3. HUMULIN N [Suspect]
     Active Substance: INSULIN HUMAN
     Indication: TYPE 2 DIABETES MELLITUS
     Dosage: UNK UNK, EACH MORNING
     Route: 058
     Dates: start: 1996
  4. METFORMIN [Concomitant]
     Active Substance: METFORMIN HYDROCHLORIDE
     Indication: TYPE 2 DIABETES MELLITUS
     Dosage: 1000 MG, UNK
  5. ARIMIDEX [Suspect]
     Active Substance: ANASTROZOLE
     Indication: PRODUCT USED FOR UNKNOWN INDICATION
     Dosage: UNK, UNKNOWN
     Route: 065
  6. HUMULIN R U-500 [Suspect]
     Active Substance: INSULIN HUMAN
     Indication: TYPE 2 DIABETES MELLITUS
     Dosage: 260 U, UNKNOWN
     Route: 058
     Dates: start: 20170601
  7. HUMULIN R U-500 [Suspect]
     Active Substance: INSULIN HUMAN
     Dosage: 245 U, DAILY
     Route: 058
     Dates: start: 20170601
  8. HUMULIN N [Suspect]
     Active Substance: INSULIN HUMAN
     Dosage: UNK, EACH EVENING
     Route: 058
     Dates: start: 1996
  9. HUMULIN R U-500 [Suspect]
     Active Substance: INSULIN HUMAN
     Dosage: 215 U, EACH EVENING
     Route: 058
     Dates: start: 20170601

REACTIONS (24)
  - Atrophy [Unknown]
  - Injection site haemorrhage [Unknown]
  - Arthralgia [Recovering/Resolving]
  - Breast cancer [Recovered/Resolved]
  - Insulin resistant diabetes [Recovering/Resolving]
  - Glycosylated haemoglobin increased [Unknown]
  - Joint injury [Recovering/Resolving]
  - Lymphoedema [Recovering/Resolving]
  - Bone disorder [Recovering/Resolving]
  - Spinal fracture [Recovering/Resolving]
  - Tendon rupture [Recovering/Resolving]
  - Tremor [Unknown]
  - Uterine cancer [Recovering/Resolving]
  - Feeling abnormal [Unknown]
  - Visual impairment [Unknown]
  - Osteoarthritis [Recovering/Resolving]
  - Blood glucose increased [Unknown]
  - Injection site induration [Unknown]
  - Gait inability [Unknown]
  - Injection site pain [Unknown]
  - Arthralgia [Unknown]
  - Fall [Unknown]
  - Joint dislocation [Unknown]
  - Blood glucose decreased [Unknown]

NARRATIVE: CASE EVENT DATE: 2013
